FAERS Safety Report 16116839 (Version 1)
Quarter: 2019Q1

REPORT INFORMATION
  Report Type: Spontaneous
  Country: FR (occurrence: FR)
  Receive Date: 20190326
  Receipt Date: 20190326
  Transmission Date: 20190418
  Serious: Yes (Hospitalization)
  Sender: FDA-Public Use
  Company Number: FR-ZYDUS-034878

PATIENT
  Age: 87 Year
  Sex: Male
  Weight: 96.1 kg

DRUGS (6)
  1. ACETYLLEUCINE [Suspect]
     Active Substance: ACETYLLEUCINE
     Indication: PRODUCT USED FOR UNKNOWN INDICATION
     Route: 048
     Dates: end: 20121128
  2. FLUINDIONE [Suspect]
     Active Substance: FLUINDIONE
     Indication: CORONARY ARTERY DISEASE
     Route: 048
     Dates: end: 20121119
  3. BENSERAZIDE HYDROCHLORIDE/LEVODOPA [Concomitant]
     Indication: PRODUCT USED FOR UNKNOWN INDICATION
     Route: 065
  4. FUROSEMIDE. [Suspect]
     Active Substance: FUROSEMIDE
     Indication: CORONARY ARTERY DISEASE
     Route: 048
     Dates: end: 20121123
  5. PRAVASTATIN. [Suspect]
     Active Substance: PRAVASTATIN
     Indication: CORONARY ARTERY DISEASE
     Route: 048
     Dates: end: 20121119
  6. LACTULOSE. [Suspect]
     Active Substance: LACTULOSE
     Indication: PRODUCT USED FOR UNKNOWN INDICATION
     Route: 048
     Dates: end: 20121119

REACTIONS (2)
  - Haematoma [Recovered/Resolved]
  - Fall [Recovered/Resolved]

NARRATIVE: CASE EVENT DATE: 2012
